FAERS Safety Report 25604924 (Version 2)
Quarter: 2025Q3

REPORT INFORMATION
  Report Type: Spontaneous
  Country: US (occurrence: US)
  Receive Date: 20250725
  Receipt Date: 20250808
  Transmission Date: 20251020
  Serious: Yes (Hospitalization, Other)
  Sender: TEVA
  Company Number: US-TEVA-VS-3353847

PATIENT

DRUGS (2)
  1. UZEDY [Suspect]
     Active Substance: RISPERIDONE
     Indication: Product used for unknown indication
     Route: 065
  2. UZEDY [Suspect]
     Active Substance: RISPERIDONE
     Route: 065

REACTIONS (3)
  - Schizophrenia [Unknown]
  - Therapeutic response shortened [Unknown]
  - Therapy naive [Unknown]
